FAERS Safety Report 6052845-2 (Version None)
Quarter: 2009Q1

REPORT INFORMATION
  Report Type: 
  Country: None (occurrence: None)
  Receive Date: 20090127
  Receipt Date: 20090123
  Transmission Date: 20090719
  Serious: Yes (Other)
  Sender: FDA-Public Use
  Company Number: JP-BAYER-200910235BYL

PATIENT
  Age: 16 Year
  Sex: Female

DRUGS (7)
  1. CIPROXAN [Suspect]
     Indication: UNEVALUABLE EVENT
     Route: 048
     Dates: start: 20080801
  2. CIPROXAN [Suspect]
     Route: 048
     Dates: start: 20080301
  3. CIPROXAN [Suspect]
     Dosage: UNIT DOSE: 100 MG
     Route: 048
     Dates: start: 20090119, end: 20090119
  4. BRUFEN [Concomitant]
     Route: 048
     Dates: start: 20080301
  5. BRUFEN [Concomitant]
     Route: 048
     Dates: start: 20080801
  6. PL [Concomitant]
     Indication: UNEVALUABLE EVENT
     Route: 048
     Dates: start: 20080301
  7. PL [Concomitant]
     Route: 048
     Dates: start: 20080801

REACTIONS (3)
  - ANAPHYLACTIC SHOCK [None]
  - ANAPHYLACTOID REACTION [None]
  - URTICARIA [None]
